FAERS Safety Report 25644966 (Version 1)
Quarter: 2025Q3

REPORT INFORMATION
  Report Type: Spontaneous
  Country: EU (occurrence: EU)
  Receive Date: 20250805
  Receipt Date: 20250805
  Transmission Date: 20251020
  Serious: Yes (Hospitalization)
  Sender: FRESENIUS KABI
  Company Number: None

PATIENT
  Age: 74 Year
  Sex: Female
  Weight: 116 kg

DRUGS (5)
  1. CLINDAMYCIN PHOSPHATE [Suspect]
     Active Substance: CLINDAMYCIN PHOSPHATE
     Indication: Sepsis
     Dosage: 1 AMPOULE AT MIDNIGHT, 6AM,NOON,6PM
     Route: 042
     Dates: start: 20250620, end: 20250705
  2. LEVOFLOXACIN [Suspect]
     Active Substance: LEVOFLOXACIN
     Indication: Sepsis
     Dosage: 500 MG MORNING AND EVENING
     Route: 042
     Dates: start: 20250620, end: 20250707
  3. PRIMPERAN [Concomitant]
     Active Substance: METOCLOPRAMIDE HYDROCHLORIDE
     Indication: Nausea
     Route: 048
     Dates: start: 20250721
  4. PRIMPERAN [Concomitant]
     Active Substance: METOCLOPRAMIDE HYDROCHLORIDE
     Route: 058
     Dates: start: 202506, end: 20250721
  5. FUNGIZONE 10 PER CENT, oral suspension [AMPHOTERICIN B] [Concomitant]
     Indication: Product used for unknown indication
     Route: 048
     Dates: start: 202506, end: 20250706

REACTIONS (2)
  - Purpura [Recovered/Resolved]
  - Rash [Recovered/Resolved]

NARRATIVE: CASE EVENT DATE: 20250705
